FAERS Safety Report 4496612-X (Version None)
Quarter: 2004Q4

REPORT INFORMATION
  Report Type: 
  Country: None (occurrence: None)
  Receive Date: 20041108
  Receipt Date: 20041108
  Transmission Date: 20050328
  Serious: Yes (Other)
  Sender: FDA-Public Use
  Company Number: None

PATIENT
  Age: 64 Year
  Sex: Male
  Weight: 106.1 kg

DRUGS (1)
  1. FUROSEMIDE [Suspect]

REACTIONS (2)
  - PRURITUS [None]
  - RASH [None]
